FAERS Safety Report 6620205-9 (Version None)
Quarter: 2010Q1

REPORT INFORMATION
  Report Type: 
  Country: None (occurrence: None)
  Receive Date: 20100309
  Receipt Date: 20100301
  Transmission Date: 20100710
  Serious: Yes (Death)
  Sender: FDA-Public Use
  Company Number: GB-TEVA-226021ISR

PATIENT
  Sex: Female

DRUGS (2)
  1. EPIRUBICIN [Suspect]
  2. CHEMOTHERAPEUTICS NOS [Concomitant]

REACTIONS (2)
  - ACUTE PROMYELOCYTIC LEUKAEMIA [None]
  - CAECITIS [None]
